FAERS Safety Report 7081818-6 (Version None)
Quarter: 2010Q4

REPORT INFORMATION
  Report Type: 
  Country: None (occurrence: None)
  Receive Date: 20101103
  Receipt Date: 20101028
  Transmission Date: 20110411
  Serious: Yes (Life-Threatening)
  Sender: FDA-Public Use
  Company Number: JP-ABBOTT-09P-087-0591378-00

PATIENT
  Sex: Male

DRUGS (17)
  1. NORVIR [Suspect]
     Indication: HIV INFECTION
     Dosage: 200 MG DAILY DOSE
     Route: 048
     Dates: start: 20061111, end: 20090216
  2. FOSAMPRENAVIR [Suspect]
     Indication: HIV INFECTION
     Dates: start: 20090625, end: 20091112
  3. EMTRICITABINE W/TENOFOVIR [Suspect]
     Indication: HIV INFECTION
     Dosage: 1 TABLET DAILY DOSE
     Route: 048
     Dates: start: 20080401, end: 20090216
  4. ZIDOVUDINE [Concomitant]
     Indication: HIV INFECTION
     Dosage: 400 MG DAILY DOSE
     Route: 048
     Dates: start: 20090217, end: 20090624
  5. EFAVIRENZ [Concomitant]
     Indication: HIV INFECTION
     Dosage: 600 MG DAILY DOSE
     Dates: start: 20090217, end: 20090624
  6. RALTEGRAVIR [Concomitant]
     Indication: HIV INFECTION
     Dosage: 800 MG DAILY DOSE
     Route: 048
     Dates: start: 20090217, end: 20090624
  7. RALTEGRAVIR [Concomitant]
     Dosage: 800 MG DAILY
     Route: 048
     Dates: start: 20091112
  8. SULFAMETHOXAZOLE AND TRIMETHOPRIM [Concomitant]
     Indication: ANTIFUNGAL PROPHYLAXIS
     Dosage: 1 TABLET DAILY DOSE
     Route: 048
     Dates: start: 20080711
  9. ABACAVIR SULFATE/LAMIVUDINE [Concomitant]
     Indication: HIV INFECTION
     Route: 048
     Dates: start: 20090625
  10. AZITHROMYCIN [Concomitant]
     Indication: MYCOBACTERIUM AVIUM COMPLEX INFECTION
     Dosage: 600MG DAILY
     Route: 048
     Dates: start: 20090605, end: 20100301
  11. AZITHROMYCIN [Concomitant]
     Route: 048
     Dates: start: 20100305
  12. RIFABUTIN [Concomitant]
     Indication: TUBERCULOSIS
     Dosage: 150MG DAILY
     Route: 048
     Dates: start: 20090623
  13. ISONIAZID [Concomitant]
     Indication: TUBERCULOSIS
     Dosage: 300MG DAILY
     Route: 048
     Dates: start: 20090623
  14. ETHANBUTOL [Concomitant]
     Indication: TUBERCULOSIS
     Dosage: 750MG DAILY
     Route: 048
     Dates: start: 20090623
  15. PYRAZINAMIDE [Concomitant]
     Indication: TUBERCULOSIS
     Dosage: 1G DAILY
     Route: 048
     Dates: start: 20090907
  16. INSULIN ASPART [Concomitant]
     Indication: DIABETES MELLITUS
     Route: 050
     Dates: start: 20090623
  17. INSULIN DETEMIR [Concomitant]
     Indication: DIABETES MELLITUS
     Dosage: 8 IU DAILY
     Route: 050
     Dates: start: 20090623

REACTIONS (2)
  - GASTRIC ULCER [None]
  - LYMPHOMA [None]
